FAERS Safety Report 25083062 (Version 4)
Quarter: 2025Q2

REPORT INFORMATION
  Report Type: Report from Study
  Country: CA (occurrence: CA)
  Receive Date: 20250317
  Receipt Date: 20250430
  Transmission Date: 20250717
  Serious: Yes (Other)
  Sender: TAKEDA
  Company Number: CA-TAKEDA-2022TUS049257

PATIENT
  Age: 24 Year
  Sex: Male

DRUGS (4)
  1. VEDOLIZUMAB [Suspect]
     Active Substance: VEDOLIZUMAB
     Indication: Colitis ulcerative
  2. VEDOLIZUMAB [Suspect]
     Active Substance: VEDOLIZUMAB
     Dosage: 300 MILLIGRAM, Q4WEEKS
     Dates: start: 20250409, end: 20250409
  3. MESALAMINE [Concomitant]
     Active Substance: MESALAMINE
     Dosage: UNK UNK, QD
     Dates: start: 202104
  4. Salofalk [Concomitant]

REACTIONS (9)
  - Haematochezia [Unknown]
  - Colitis ulcerative [Unknown]
  - Rectal haemorrhage [Unknown]
  - Diarrhoea [Unknown]
  - Mucous stools [Unknown]
  - Rectal tenesmus [Unknown]
  - Frequent bowel movements [Unknown]
  - Off label use [Unknown]
  - Abdominal pain [Unknown]

NARRATIVE: CASE EVENT DATE: 20250409
